FAERS Safety Report 20378319 (Version 1)
Quarter: 2022Q1

REPORT INFORMATION
  Report Type: Spontaneous
  Country: US (occurrence: US)
  Receive Date: 20220126
  Receipt Date: 20220126
  Transmission Date: 20220423
  Serious: No
  Sender: FDA-Public Use
  Company Number: US-SA-SAC20220122000091

PATIENT
  Age: 85 Year
  Sex: Female

DRUGS (22)
  1. DUPIXENT [Suspect]
     Active Substance: DUPILUMAB
     Indication: Illness
     Dosage: 300 MG, QOW
     Route: 058
     Dates: start: 202010
  2. AMOXICILLIN [Concomitant]
     Active Substance: AMOXICILLIN
     Dosage: 125 MG/5 ML SUSP RECON
  3. SYSTANE ULTRA [Concomitant]
     Active Substance: POLYETHYLENE GLYCOL 400\PROPYLENE GLYCOL
     Dosage: STRENGTH: 0.3-0.4 % DROPS.
  4. NITROSTAT [Concomitant]
     Active Substance: NITROGLYCERIN
  5. TUMS [Concomitant]
     Active Substance: CALCIUM CARBONATE
     Dosage: 200/500 MG
  6. TYLENOL [Concomitant]
     Active Substance: ACETAMINOPHEN
  7. ALIGN [Concomitant]
     Active Substance: BIFIDOBACTERIUM LONGUM SUBSP. INFANTIS
  8. ASPIRIN [Concomitant]
     Active Substance: ASPIRIN
  9. ISOSORBIDE MONONITRATE [Concomitant]
     Active Substance: ISOSORBIDE MONONITRATE
  10. VALTREX [Concomitant]
     Active Substance: VALACYCLOVIR HYDROCHLORIDE
  11. CLONIDINE [Concomitant]
     Active Substance: CLONIDINE
     Dosage: 0.1 MG, QD
  12. NOVOLOG [Concomitant]
     Active Substance: INSULIN ASPART
  13. XOPENEX HFA [Concomitant]
     Active Substance: LEVALBUTEROL TARTRATE
     Dosage: HFA AER
  14. OMEPRAZOLE [Concomitant]
     Active Substance: OMEPRAZOLE
  15. VYTORIN [Concomitant]
     Active Substance: EZETIMIBE\SIMVASTATIN
  16. PLAVIX [Concomitant]
     Active Substance: CLOPIDOGREL BISULFATE
  17. LASIX [Concomitant]
     Active Substance: FUROSEMIDE
  18. SINGULAIR [Concomitant]
     Active Substance: MONTELUKAST SODIUM
  19. DULERA [Concomitant]
     Active Substance: FORMOTEROL FUMARATE DIHYDRATE\MOMETASONE FUROATE
     Dosage: 100-5 MCG HFA AER AD
  20. ATROVENT HFA [Concomitant]
     Active Substance: IPRATROPIUM BROMIDE
     Dosage: HFA AER AD
  21. METOPROLOL SUCCINATE [Concomitant]
     Active Substance: METOPROLOL SUCCINATE
  22. DIOVAN [Concomitant]
     Active Substance: VALSARTAN

REACTIONS (5)
  - Dyspnoea [Unknown]
  - Eye pain [Unknown]
  - Somnambulism [Unknown]
  - Decreased activity [Unknown]
  - Product use in unapproved indication [Unknown]

NARRATIVE: CASE EVENT DATE: 20201001
